FAERS Safety Report 8215879-5 (Version None)
Quarter: 2012Q1

REPORT INFORMATION
  Report Type: 
  Country: None (occurrence: None)
  Receive Date: 20120316
  Receipt Date: 20120308
  Transmission Date: 20120608
  Serious: Yes (Hospitalization)
  Sender: FDA-Public Use
  Company Number: JP-MERCK-1203USA00215

PATIENT

DRUGS (1)
  1. FAMOTIDINE [Suspect]
     Route: 048

REACTIONS (1)
  - BLOOD PROLACTIN INCREASED [None]
